FAERS Safety Report 9628879 (Version 1)
Quarter: 2013Q4

REPORT INFORMATION
  Report Type: Spontaneous
  Country: BR (occurrence: BR)
  Receive Date: 20131017
  Receipt Date: 20131017
  Transmission Date: 20140711
  Serious: Yes (Other)
  Sender: FDA-Public Use
  Company Number: BR-JNJFOC-20131007177

PATIENT
  Age: 53 Year
  Sex: Female
  Weight: 70 kg

DRUGS (5)
  1. INVEGA [Suspect]
     Indication: PRODUCT USED FOR UNKNOWN INDICATION
     Route: 048
     Dates: start: 20131007
  2. FENERGAN [Suspect]
     Indication: ADVERSE EVENT
     Route: 065
  3. CYMBALTA [Concomitant]
     Route: 065
  4. ANGIPRESS [Concomitant]
     Route: 065
  5. ATORVASTATIN [Concomitant]
     Route: 065

REACTIONS (7)
  - Somnolence [Not Recovered/Not Resolved]
  - Palpitations [Not Recovered/Not Resolved]
  - Hypokinesia [Recovered/Resolved]
  - Movement disorder [Recovered/Resolved]
  - Accidental exposure to product [Unknown]
  - Fatigue [Not Recovered/Not Resolved]
  - Medication error [Unknown]
